FAERS Safety Report 7495703-9 (Version None)
Quarter: 2011Q2

REPORT INFORMATION
  Report Type: 
  Country: None (occurrence: None)
  Receive Date: 20110523
  Receipt Date: 20110512
  Transmission Date: 20111010
  Serious: Yes (Other)
  Sender: FDA-Public Use
  Company Number: JP-JNJFOC-20110303134

PATIENT
  Age: 58 Year
  Sex: Male
  Weight: 61 kg

DRUGS (30)
  1. STOCRIN [Concomitant]
     Indication: HIV INFECTION
     Route: 048
     Dates: start: 20070906
  2. CYCLOPHOSPHAMIDE [Concomitant]
     Route: 042
     Dates: start: 20071217, end: 20071219
  3. DOXORUBICIN HCL [Suspect]
     Dosage: CYCLE 4
     Route: 042
     Dates: start: 20071002, end: 20071002
  4. DOXORUBICIN HCL [Suspect]
     Dosage: CYCLE 7
     Route: 042
     Dates: start: 20080404, end: 20080404
  5. ONCOVIN [Concomitant]
     Route: 042
     Dates: start: 20071220, end: 20071220
  6. DOXORUBICIN HCL [Suspect]
     Dosage: CYCLE 5
     Route: 042
     Dates: start: 20071015, end: 20071015
  7. DOXORUBICIN HCL [Suspect]
     Dosage: CYCLE 10
     Route: 042
     Dates: start: 20080730, end: 20080730
  8. TRUVADA [Concomitant]
     Indication: HIV INFECTION
     Route: 048
     Dates: start: 20070906
  9. METHOTREXATE [Concomitant]
     Route: 042
     Dates: start: 20080116, end: 20080116
  10. CYTARABINE [Concomitant]
     Route: 042
     Dates: start: 20080311, end: 20080313
  11. CYTARABINE [Concomitant]
     Route: 042
     Dates: start: 20080701, end: 20080703
  12. CYTARABINE [Concomitant]
     Route: 042
     Dates: start: 20080117, end: 20080118
  13. DOXORUBICIN HCL [Suspect]
     Dosage: CYCLE 6
     Route: 042
     Dates: start: 20071029, end: 20071029
  14. DOXORUBICIN HCL [Suspect]
     Dosage: CYCLE 1
     Route: 042
     Dates: start: 20070820, end: 20070820
  15. DOXORUBICIN HCL [Suspect]
     Dosage: CYCLE 8
     Route: 042
     Dates: start: 20080519, end: 20080519
  16. CYCLOPHOSPHAMIDE [Concomitant]
     Route: 042
     Dates: start: 20080212, end: 20080215
  17. ONCOVIN [Concomitant]
     Route: 042
     Dates: start: 20080603, end: 20080605
  18. ETOPOSIDE [Concomitant]
     Route: 042
     Dates: start: 20080422, end: 20080424
  19. METHOTREXATE [Concomitant]
     Route: 042
     Dates: start: 20080701, end: 20080703
  20. RITUXAN [Concomitant]
     Route: 042
     Dates: start: 20080115, end: 20080115
  21. DOXORUBICIN HCL [Suspect]
     Dosage: CYCLE 2
     Route: 042
     Dates: start: 20070903, end: 20070903
  22. DOXORUBICIN HYDROCHLORIDE [Concomitant]
     Route: 042
     Dates: start: 20080212, end: 20080215
  23. ONCOVIN [Concomitant]
     Route: 042
     Dates: start: 20080212, end: 20080212
  24. RITUXAN [Concomitant]
     Route: 042
     Dates: start: 20080421, end: 20080421
  25. DOXORUBICIN HCL [Suspect]
     Dosage: CYCLE 9
     Route: 042
     Dates: start: 20080623, end: 20080623
  26. CYCLOPHOSPHAMIDE [Concomitant]
     Route: 042
     Dates: start: 20080603, end: 20080605
  27. DOXORUBICIN HYDROCHLORIDE [Concomitant]
     Route: 042
     Dates: start: 20071220, end: 20071220
  28. METHOTREXATE [Concomitant]
     Route: 042
     Dates: start: 20080311, end: 20080313
  29. DOXORUBICIN HCL [Suspect]
     Indication: KAPOSI'S SARCOMA
     Dosage: CYCLE 3
     Route: 042
     Dates: start: 20070918, end: 20070918
  30. DOXORUBICIN HYDROCHLORIDE [Concomitant]
     Route: 042
     Dates: start: 20080603, end: 20080605

REACTIONS (1)
  - PULMONARY HYPERTENSION [None]
